FAERS Safety Report 11823173 (Version 1)
Quarter: 2015Q4

REPORT INFORMATION
  Report Type: Spontaneous
  Country: BR (occurrence: BR)
  Receive Date: 20151210
  Receipt Date: 20151210
  Transmission Date: 20160305
  Serious: Yes (Other)
  Sender: FDA-Public Use
  Company Number: BR-BAYER-2015-480796

PATIENT
  Sex: Female

DRUGS (1)
  1. CIPRO [Suspect]
     Active Substance: CIPROFLOXACIN HYDROCHLORIDE
     Indication: KIDNEY INFECTION
     Dosage: UNK

REACTIONS (7)
  - Nervous system disorder [None]
  - Tinnitus [None]
  - Dizziness [None]
  - Torticollis [None]
  - Gait disturbance [None]
  - Pain in extremity [None]
  - Back pain [None]
